FAERS Safety Report 6517980-0 (Version None)
Quarter: 2009Q4

REPORT INFORMATION
  Report Type: 
  Country: None (occurrence: None)
  Receive Date: 20091218
  Receipt Date: 20091204
  Transmission Date: 20100525
  Serious: Yes (Hospitalization, Disabling)
  Sender: FDA-Public Use
  Company Number: DSJ-2009-13750

PATIENT
  Age: 72 Year
  Sex: Male

DRUGS (2)
  1. OLMESARTAN MEDOXOMIL [Suspect]
     Indication: HYPERTENSION
     Dosage: 5 (5 MG,1 IN 1 D),PER ORAL
     Route: 048
     Dates: start: 20090622, end: 20091019
  2. ADALAT CC [Suspect]
     Dosage: 10 (10 MG,1 IN 1 D)
     Dates: start: 20090622, end: 20091019

REACTIONS (1)
  - DRUG ERUPTION [None]
